FAERS Safety Report 9126677 (Version 3)
Quarter: 2013Q4

REPORT INFORMATION
  Report Type: Spontaneous
  Country: FR (occurrence: FR)
  Receive Date: 20130228
  Receipt Date: 20131018
  Transmission Date: 20140711
  Serious: Yes (Death, Life-Threatening, Hospitalization)
  Sender: FDA-Public Use
  Company Number: FR-JNJFOC-20130211583

PATIENT
  Age: 81 Year
  Sex: Male

DRUGS (11)
  1. XARELTO [Suspect]
     Indication: CEREBROVASCULAR ACCIDENT PROPHYLAXIS
     Route: 048
  2. XARELTO [Suspect]
     Indication: CEREBROVASCULAR ACCIDENT PROPHYLAXIS
     Route: 048
     Dates: start: 20121026
  3. XARELTO [Suspect]
     Indication: ATRIAL FIBRILLATION
     Route: 048
  4. XARELTO [Suspect]
     Indication: ATRIAL FIBRILLATION
     Route: 048
     Dates: start: 20121026
  5. BURINEX [Concomitant]
     Route: 065
  6. ARICEPT [Concomitant]
     Route: 065
  7. TRIATEC [Concomitant]
     Route: 065
  8. FLUDEX [Concomitant]
     Route: 065
  9. LEVOTHYROX [Concomitant]
     Route: 065
  10. NEBILOX [Concomitant]
     Route: 065
  11. AMLOR [Concomitant]
     Route: 065

REACTIONS (2)
  - Ischaemic stroke [Fatal]
  - Drug ineffective [Unknown]
